FAERS Safety Report 17813855 (Version 9)
Quarter: 2021Q3

REPORT INFORMATION
  Report Type: Report from Study
  Country: CO (occurrence: CO)
  Receive Date: 20200521
  Receipt Date: 20210819
  Transmission Date: 20211014
  Serious: Yes (Hospitalization, Other)
  Sender: FDA-Public Use
  Company Number: PHHY2017CO135492

PATIENT
  Age: 56 Year
  Sex: Male
  Weight: 78 kg

DRUGS (18)
  1. AFINITOR [Suspect]
     Active Substance: EVEROLIMUS
     Dosage: 10 MG, QD
     Route: 048
  2. SANDOSTATIN LAR DEPOT [Suspect]
     Active Substance: OCTREOTIDE ACETATE
     Indication: PANCREATIC NEUROENDOCRINE TUMOUR
     Dosage: 30 MG, QMO (AMPOULE)
     Route: 030
     Dates: start: 20150110
  3. AFINITOR [Suspect]
     Active Substance: EVEROLIMUS
     Indication: PANCREATIC NEUROENDOCRINE TUMOUR
     Dosage: 10 MG, QD
     Route: 048
     Dates: start: 201709
  4. LOSARTAN. [Suspect]
     Active Substance: LOSARTAN
     Dosage: 50 MG, Q12H
     Route: 048
  5. AFINITOR [Suspect]
     Active Substance: EVEROLIMUS
     Dosage: 10 MG, QD
     Route: 048
     Dates: start: 201801, end: 20180428
  6. ESOMEPRAZOLE. [Suspect]
     Active Substance: ESOMEPRAZOLE MAGNESIUM
     Indication: ABDOMINAL PAIN UPPER
     Dosage: UNK, Q12H
     Route: 048
  7. BETAMETHASONE. [Concomitant]
     Active Substance: BETAMETHASONE
     Indication: PRODUCT USED FOR UNKNOWN INDICATION
     Dosage: UNK
     Route: 065
  8. SANDOSTATIN LAR DEPOT [Suspect]
     Active Substance: OCTREOTIDE ACETATE
     Dosage: 30 MG, QMO
     Route: 030
     Dates: start: 201502, end: 20150428
  9. LOSARTAN. [Suspect]
     Active Substance: LOSARTAN
     Indication: HYPERTENSION
     Dosage: 50 MG, QD (STARTED TWO YEARS AGO)
     Route: 048
  10. TRAMADOL. [Suspect]
     Active Substance: TRAMADOL
     Indication: BACK PAIN
     Dosage: 7 GTT, QD
     Route: 048
  11. AFINITOR [Suspect]
     Active Substance: EVEROLIMUS
     Indication: NEUROENDOCRINE TUMOUR
     Dosage: 10 MG, QD
     Route: 048
     Dates: start: 20170811
  12. ATORVASTATIN [Suspect]
     Active Substance: ATORVASTATIN
     Indication: PRODUCT USED FOR UNKNOWN INDICATION
     Dosage: 40 MG
     Route: 065
  13. THIAMINE. [Suspect]
     Active Substance: THIAMINE
     Indication: PRODUCT USED FOR UNKNOWN INDICATION
     Dosage: UNK
     Route: 065
  14. TRAMADOL. [Suspect]
     Active Substance: TRAMADOL
     Indication: ABDOMINAL PAIN UPPER
     Dosage: UNK
     Route: 065
  15. AFINITOR [Suspect]
     Active Substance: EVEROLIMUS
     Dosage: 10 MG, QD
     Route: 048
     Dates: start: 20171109
  16. HYOSCINE [Concomitant]
     Active Substance: SCOPOLAMINE
     Indication: ABDOMINAL PAIN UPPER
     Dosage: UNK UNK, QD
     Route: 048
  17. SANDOSTATIN LAR DEPOT [Suspect]
     Active Substance: OCTREOTIDE ACETATE
     Dosage: 30 MG, QMO
     Route: 030
     Dates: start: 20150113
  18. SANDOSTATIN LAR DEPOT [Suspect]
     Active Substance: OCTREOTIDE ACETATE
     Dosage: 30 MG, QMO
     Route: 030

REACTIONS (26)
  - Lip exfoliation [Unknown]
  - Onychoclasis [Unknown]
  - Back pain [Not Recovered/Not Resolved]
  - Blood urine present [Unknown]
  - Malaise [Unknown]
  - Anxiety [Unknown]
  - Feeling of despair [Unknown]
  - Headache [Not Recovered/Not Resolved]
  - Skin exfoliation [Unknown]
  - Blood glucose increased [Unknown]
  - Movement disorder [Unknown]
  - Stomatitis [Not Recovered/Not Resolved]
  - Hepatic neoplasm [Unknown]
  - Blister [Unknown]
  - Neoplasm progression [Unknown]
  - Onychomadesis [Unknown]
  - Pyrexia [Unknown]
  - Product availability issue [Unknown]
  - Ill-defined disorder [Unknown]
  - Abdominal pain upper [Not Recovered/Not Resolved]
  - Abdominal pain [Unknown]
  - Mass [Unknown]
  - Pain in extremity [Unknown]
  - Discouragement [Unknown]
  - Haematochezia [Unknown]
  - Oral mucosal blistering [Unknown]

NARRATIVE: CASE EVENT DATE: 20170825
